FAERS Safety Report 18276147 (Version 1)
Quarter: 2020Q3

REPORT INFORMATION
  Report Type: Spontaneous
  Country: DE (occurrence: DE)
  Receive Date: 20200917
  Receipt Date: 20200917
  Transmission Date: 20201103
  Serious: Yes (Other)
  Sender: FDA-Public Use
  Company Number: DE-TEVA-2020-DE-1829069

PATIENT
  Age: 7 Decade
  Sex: Male
  Weight: 80 kg

DRUGS (2)
  1. ATORVASTATIN ABZ 40 MG FILMTABLETTEN [Suspect]
     Active Substance: ATORVASTATIN
     Dosage: 40 MILLIGRAM DAILY;
     Route: 065
     Dates: start: 201909
  2. AMLODIPIN AAA 5 MG TABLETTEN [Suspect]
     Active Substance: AMLODIPINE BESYLATE
     Dosage: 5 MILLIGRAM DAILY;
     Route: 065
     Dates: start: 201809

REACTIONS (3)
  - Overweight [Not Recovered/Not Resolved]
  - Myalgia [Not Recovered/Not Resolved]
  - Erectile dysfunction [Not Recovered/Not Resolved]

NARRATIVE: CASE EVENT DATE: 201809
